FAERS Safety Report 24308700 (Version 1)
Quarter: 2024Q3

REPORT INFORMATION
  Report Type: Spontaneous
  Country: IT (occurrence: IT)
  Receive Date: 20240911
  Receipt Date: 20240911
  Transmission Date: 20241016
  Serious: Yes (Other)
  Sender: AMERICAN REGENT
  Company Number: IT-AMERICAN REGENT INC-2024003435

PATIENT
  Age: 88 Year
  Sex: Female

DRUGS (2)
  1. FERINJECT [Suspect]
     Active Substance: FERRIC CARBOXYMALTOSE
     Indication: Iron deficiency anaemia
     Dosage: UNK
     Route: 042
  2. FERINJECT [Suspect]
     Active Substance: FERRIC CARBOXYMALTOSE
     Dosage: DILUTED 500 MG IN 100 ML (500 MG)
     Dates: start: 20240828, end: 20240828

REACTIONS (8)
  - Cyanosis [Recovered/Resolved]
  - Oxygen saturation decreased [Recovered/Resolved]
  - Wheezing [Recovered/Resolved]
  - Rickets [Unknown]
  - Nausea [Recovered/Resolved]
  - Vomiting [Recovered/Resolved]
  - Hypotension [Recovered/Resolved]
  - Spinal pain [Recovered/Resolved]

NARRATIVE: CASE EVENT DATE: 20240828
